FAERS Safety Report 17354897 (Version 1)
Quarter: 2020Q1

REPORT INFORMATION
  Report Type: Spontaneous
  Country: US (occurrence: US)
  Receive Date: 20200131
  Receipt Date: 20200131
  Transmission Date: 20200409
  Serious: No
  Sender: FDA-Public Use
  Company Number: US-PFIZER INC-2020043319

PATIENT
  Age: 58 Year
  Sex: Female

DRUGS (1)
  1. LYRICA CR [Suspect]
     Active Substance: PREGABALIN
     Dosage: UNK UNK, 1X/DAY (I ONLY TAKE THEM AT NIGHT)

REACTIONS (1)
  - Arthralgia [Unknown]
